FAERS Safety Report 25973697 (Version 1)
Quarter: 2025Q4

REPORT INFORMATION
  Report Type: Spontaneous
  Country: US (occurrence: US)
  Receive Date: 20251029
  Receipt Date: 20251029
  Transmission Date: 20260117
  Serious: No
  Sender: AMNEAL
  Company Number: US-AMNEAL PHARMACEUTICALS-2025-AMRX-01371

PATIENT
  Sex: Female

DRUGS (4)
  1. PROGESTERONE [Suspect]
     Active Substance: PROGESTERONE
     Indication: Hot flush
     Dosage: UNK
     Route: 048
  2. PROGESTERONE [Suspect]
     Active Substance: PROGESTERONE
     Indication: Night sweats
  3. ESTRADIOL [Suspect]
     Active Substance: ESTRADIOL
     Indication: Hot flush
     Dosage: 0.5 MG PATCH
     Route: 062
  4. ESTRADIOL [Suspect]
     Active Substance: ESTRADIOL
     Indication: Night sweats

REACTIONS (2)
  - Breast tenderness [Unknown]
  - Abdominal pain upper [Unknown]
